FAERS Safety Report 7036768-8 (Version None)
Quarter: 2010Q4

REPORT INFORMATION
  Report Type: 
  Country: None (occurrence: None)
  Receive Date: 20101011
  Receipt Date: 20100325
  Transmission Date: 20110411
  Serious: Yes (Other)
  Sender: FDA-Public Use
  Company Number: US-BAYER-200942660NA

PATIENT
  Age: 37 Year
  Sex: Female
  Weight: 80 kg

DRUGS (7)
  1. YASMIN [Suspect]
     Indication: ENDOMETRIOSIS
     Route: 048
     Dates: start: 20060601, end: 20080501
  2. YAZ [Suspect]
     Indication: ENDOMETRIOSIS
     Route: 048
     Dates: start: 20080801
  3. OCELLA [Suspect]
     Indication: ENDOMETRIOSIS
     Route: 048
     Dates: start: 20080801, end: 20090801
  4. LEVOXYL [Concomitant]
     Dates: start: 20020101
  5. CYTOMEL [Concomitant]
     Dates: start: 20050101
  6. MULTI-VITAMIN [Concomitant]
  7. FLAX SEED OIL [Concomitant]

REACTIONS (9)
  - ABDOMINAL DISCOMFORT [None]
  - ABDOMINAL PAIN UPPER [None]
  - ABDOMINAL TENDERNESS [None]
  - CHEST PAIN [None]
  - CHILLS [None]
  - CHOLECYSTITIS CHRONIC [None]
  - GALLBLADDER DISORDER [None]
  - GASTROOESOPHAGEAL REFLUX DISEASE [None]
  - NAUSEA [None]
